FAERS Safety Report 7454551-6 (Version None)
Quarter: 2011Q2

REPORT INFORMATION
  Report Type: 
  Country: None (occurrence: None)
  Receive Date: 20110503
  Receipt Date: 20110429
  Transmission Date: 20111010
  Serious: Yes (Death)
  Sender: FDA-Public Use
  Company Number: PHHY2011CR36380

PATIENT
  Sex: Female

DRUGS (1)
  1. CO-DIOVAN [Suspect]
     Dosage: 320 MG VALS AND 25 MG HYDR (1 TABLET DAILY)
     Route: 048

REACTIONS (1)
  - NEOPLASM MALIGNANT [None]
